FAERS Safety Report 8552588-7 (Version None)
Quarter: 2012Q3

REPORT INFORMATION
  Report Type: 
  Country: None (occurrence: None)
  Receive Date: 20120719
  Receipt Date: 20120705
  Transmission Date: 20120928
  Serious: Yes (Other)
  Sender: FDA-Public Use
  Company Number: 12-129C

PATIENT
  Age: 63 Year
  Sex: Female
  Weight: 66.6788 kg

DRUGS (3)
  1. CALCIUM CITRATE [Concomitant]
  2. MULTI-VITAMIN [Concomitant]
  3. CETIRIZINE HCI (ZYRTEC CAPSULE) [Suspect]
     Indication: SEASONAL ALLERGY
     Dosage: 1 DF / ONCE / ORAL
     Route: 048
     Dates: start: 20120409, end: 20120409

REACTIONS (3)
  - VISION BLURRED [None]
  - POLLAKIURIA [None]
  - HEADACHE [None]
